FAERS Safety Report 18244783 (Version 1)
Quarter: 2020Q3

REPORT INFORMATION
  Report Type: Spontaneous
  Country: US (occurrence: US)
  Receive Date: 20200908
  Receipt Date: 20200908
  Transmission Date: 20201103
  Serious: Yes (Death, Disabling, Other)
  Sender: FDA-Public Use
  Company Number: US-PURDUE-USA-2020-0164827

PATIENT
  Age: 44 Year
  Sex: Male

DRUGS (19)
  1. OXYCODONE HCL TABLETS (RHODES 91?490) [Suspect]
     Active Substance: OXYCODONE HYDROCHLORIDE
     Indication: PAIN
     Dosage: 15 MG, Q4H PRN
     Route: 048
  2. OXYCODONE HCL TABLETS (RHODES 91?490) [Suspect]
     Active Substance: OXYCODONE HYDROCHLORIDE
     Dosage: 10 MG, UNK
     Route: 048
  3. PERCOCET                           /00446701/ [Suspect]
     Active Substance: ACETAMINOPHEN\OXYCODONE HYDROCHLORIDE\OXYCODONE TEREPHTHALATE
     Indication: PRODUCT USED FOR UNKNOWN INDICATION
     Dosage: 335 MG, Q4H
     Route: 048
  4. CIPROFLOXACIN. [Concomitant]
     Active Substance: CIPROFLOXACIN
     Indication: PRODUCT USED FOR UNKNOWN INDICATION
     Dosage: 500 MG, UNK
     Route: 048
  5. TEMAZEPAM. [Concomitant]
     Active Substance: TEMAZEPAM
     Indication: PRODUCT USED FOR UNKNOWN INDICATION
     Dosage: 30 MG, UNK
     Route: 048
  6. HYDROCODONE BITARTRATE AND ACETAMINOPHEN [Suspect]
     Active Substance: ACETAMINOPHEN\HYDROCODONE BITARTRATE
     Indication: PRODUCT USED FOR UNKNOWN INDICATION
     Dosage: 507.5 MG, UNK
     Route: 048
  7. METRONIDAZOL                       /00012501/ [Concomitant]
     Active Substance: METRONIDAZOLE
     Indication: PRODUCT USED FOR UNKNOWN INDICATION
     Dosage: 500 MG, UNK
     Route: 048
  8. BUSPIRONE [Concomitant]
     Active Substance: BUSPIRONE HYDROCHLORIDE
     Indication: PRODUCT USED FOR UNKNOWN INDICATION
     Dosage: 15 MG, UNK
     Route: 048
  9. OXYCODONE HCL CR TABLETS (SIMILAR TO NDA 22?272) [Suspect]
     Active Substance: OXYCODONE HYDROCHLORIDE
     Indication: PRODUCT USED FOR UNKNOWN INDICATION
     Dosage: UNKNOWN
     Route: 048
  10. OXYCODONE/ ACETAMINOPHEN TABLETS [Suspect]
     Active Substance: ACETAMINOPHEN\OXYCODONE HYDROCHLORIDE
     Indication: PRODUCT USED FOR UNKNOWN INDICATION
     Dosage: 335 MG, UNK
     Route: 048
  11. FENTANYL. [Suspect]
     Active Substance: FENTANYL
     Indication: PRODUCT USED FOR UNKNOWN INDICATION
     Dosage: 50 MCG/HR, Q72H
     Route: 062
  12. ALPRAZOLAM. [Concomitant]
     Active Substance: ALPRAZOLAM
     Indication: PRODUCT USED FOR UNKNOWN INDICATION
     Dosage: 2.25 MG, QID
     Route: 048
  13. AMBIEN [Concomitant]
     Active Substance: ZOLPIDEM TARTRATE
     Indication: PRODUCT USED FOR UNKNOWN INDICATION
     Dosage: 12.5 MG, UNK
     Route: 048
  14. ENDOCET [Suspect]
     Active Substance: ACETAMINOPHEN\OXYCODONE HYDROCHLORIDE
     Indication: PRODUCT USED FOR UNKNOWN INDICATION
     Dosage: 335 MG, UNK
     Route: 048
  15. PROMETHAZINE [Concomitant]
     Active Substance: PROMETHAZINE HYDROCHLORIDE
     Indication: PRODUCT USED FOR UNKNOWN INDICATION
     Dosage: 25 MG, UNK
     Route: 048
  16. OXYCODONE HCL TABLETS (RHODES 91?490) [Suspect]
     Active Substance: OXYCODONE HYDROCHLORIDE
     Dosage: 15 MG, Q6H PRN
     Route: 048
  17. NORCO [Suspect]
     Active Substance: ACETAMINOPHEN\HYDROCODONE BITARTRATE
     Indication: PRODUCT USED FOR UNKNOWN INDICATION
     Dosage: 335 MG, Q4H
     Route: 048
  18. NEURONTIN [Concomitant]
     Active Substance: GABAPENTIN
     Indication: PRODUCT USED FOR UNKNOWN INDICATION
     Dosage: UNKNOWN
     Route: 048
  19. LORTAB [Suspect]
     Active Substance: ACETAMINOPHEN\HYDROCODONE BITARTRATE
     Indication: PAIN
     Dosage: 510 MG, Q6H PRN
     Route: 048

REACTIONS (44)
  - Neuropathy peripheral [Unknown]
  - Mental disorder [Unknown]
  - Muscle spasms [Unknown]
  - Anxiety [Unknown]
  - Nasal congestion [Unknown]
  - Ear pain [Unknown]
  - Hypomania [Unknown]
  - Disability [Unknown]
  - Oropharyngeal pain [Unknown]
  - Headache [Unknown]
  - Tinnitus [Unknown]
  - Gout [Unknown]
  - Vomiting [Unknown]
  - Hepatic cirrhosis [Unknown]
  - Depression [Unknown]
  - Productive cough [Unknown]
  - Paraesthesia [Unknown]
  - Back pain [Unknown]
  - Tendonitis [Unknown]
  - Overdose [Unknown]
  - Cellulitis [Unknown]
  - Panic attack [Unknown]
  - Hypoaesthesia [Unknown]
  - Musculoskeletal stiffness [Unknown]
  - Gastrooesophageal reflux disease [Unknown]
  - Agoraphobia [Unknown]
  - Toxicity to various agents [Fatal]
  - Pain [Unknown]
  - Cognitive disorder [Unknown]
  - Irritable bowel syndrome [Unknown]
  - Nausea [Unknown]
  - Paralysis [Unknown]
  - Emotional distress [Unknown]
  - Splenomegaly [Unknown]
  - Paranasal sinus discomfort [Unknown]
  - Otitis media [Unknown]
  - Drug dependence [Unknown]
  - Cardiomegaly [Unknown]
  - Cholelithiasis [Unknown]
  - Pyrexia [Unknown]
  - Arthralgia [Unknown]
  - Pain in extremity [Unknown]
  - Liver function test abnormal [Unknown]
  - Insomnia [Unknown]

NARRATIVE: CASE EVENT DATE: 20190506
